FAERS Safety Report 19868855 (Version 1)
Quarter: 2021Q3

REPORT INFORMATION
  Report Type: Spontaneous
  Country: GB (occurrence: GB)
  Receive Date: 20210922
  Receipt Date: 20210922
  Transmission Date: 20211014
  Serious: Yes (Other)
  Sender: FDA-Public Use
  Company Number: GB-TAKEDA-2021TUS058041

PATIENT

DRUGS (4)
  1. ELVANSE [Suspect]
     Active Substance: LISDEXAMFETAMINE DIMESYLATE
     Indication: ATTENTION DEFICIT HYPERACTIVITY DISORDER
     Dosage: UNKNOWN
     Route: 065
  2. ATOMOXETINE. [Suspect]
     Active Substance: ATOMOXETINE HYDROCHLORIDE
     Indication: PRODUCT USED FOR UNKNOWN INDICATION
     Dosage: UNKNOWN
     Route: 065
  3. EQUASYM XL [Suspect]
     Active Substance: METHYLPHENIDATE HYDROCHLORIDE
     Indication: ATTENTION DEFICIT HYPERACTIVITY DISORDER
     Dosage: UNKNOWN
     Route: 065
  4. INTUNIV [Suspect]
     Active Substance: GUANFACINE HYDROCHLORIDE
     Indication: ATTENTION DEFICIT HYPERACTIVITY DISORDER
     Dosage: UNKNOWN
     Route: 065

REACTIONS (19)
  - Blood pressure increased [Unknown]
  - Sleep disorder [Unknown]
  - Dry mouth [Unknown]
  - Suicidal ideation [Unknown]
  - Affective disorder [Unknown]
  - Anxiety [Unknown]
  - Dermatillomania [Unknown]
  - Sexual dysfunction [Unknown]
  - Weight decreased [Unknown]
  - Aggression [Unknown]
  - Tic [Unknown]
  - Drug ineffective [Unknown]
  - Mania [Unknown]
  - Depression [Unknown]
  - Seizure [Unknown]
  - Tearfulness [Unknown]
  - Decreased appetite [Unknown]
  - Anger [Unknown]
  - Off label use [Unknown]
